FAERS Safety Report 6066314-7 (Version None)
Quarter: 2009Q1

REPORT INFORMATION
  Report Type: 
  Country: None (occurrence: None)
  Receive Date: 20090130
  Receipt Date: 20080609
  Transmission Date: 20090719
  Serious: Yes (Life-Threatening, Hospitalization)
  Sender: FDA-Public Use
  Company Number: 2008EU000680

PATIENT
  Age: 53 Year
  Sex: Female
  Weight: 66 kg

DRUGS (17)
  1. PROGRAF [Suspect]
     Indication: LIVER TRANSPLANT
     Dosage: 3 MG, BID, ORAL
     Route: 048
     Dates: start: 20080313, end: 20080322
  2. ENCORTON (PREDNISONE ACETATE) [Concomitant]
  3. URSO (USRODEOYCHLOLIC ACID) [Concomitant]
  4. METOCARD (METOPROLOL TARTRATE) [Concomitant]
  5. AMLOZEK (AMLODIPINE) [Concomitant]
  6. PIPERACILLIN SODIUM AND TAZOBACTAM SODIUM [Concomitant]
  7. DIFLUCAN [Concomitant]
  8. SOLU-MEDROL [Concomitant]
  9. FUROSEMIDE (FUROSEMIDE) [Concomitant]
  10. MAGNESIUM SULFATE [Concomitant]
  11. PANTOPRAZOLE SODIUM [Concomitant]
  12. VANCOMYCIN [Concomitant]
  13. INSULINUM MAXIRAPID CHO-S (INSULIN) [Concomitant]
  14. ALBUMIN (HUMAN) [Concomitant]
  15. GANCICLOVIR (GANCOCLOVIR) [Concomitant]
  16. TARGOCID [Concomitant]
  17. DEVISOL (CALCIFEDIOL) [Concomitant]

REACTIONS (12)
  - ABNORMAL BEHAVIOUR [None]
  - CONVULSION [None]
  - GENERAL PHYSICAL HEALTH DETERIORATION [None]
  - LIVER TRANSPLANT REJECTION [None]
  - LOSS OF CONSCIOUSNESS [None]
  - NEUROLOGICAL SYMPTOM [None]
  - NEUROTOXICITY [None]
  - PERIVENTRICULAR LEUKOMALACIA [None]
  - SEPSIS [None]
  - SEPTIC SHOCK [None]
  - SPEECH DISORDER [None]
  - TREMOR [None]
